FAERS Safety Report 9492746 (Version 1)
Quarter: 2013Q3

REPORT INFORMATION
  Report Type: Spontaneous
  Country: US (occurrence: US)
  Receive Date: 20130830
  Receipt Date: 20130830
  Transmission Date: 20140515
  Serious: Yes (Other)
  Sender: FDA-Public Use
  Company Number: US-ASTRAZENECA-2013SE65354

PATIENT
  Age: 76 Year
  Sex: Female
  Weight: 63 kg

DRUGS (10)
  1. LISINOPRIL [Suspect]
     Indication: HEART RATE IRREGULAR
     Route: 048
     Dates: start: 2013
  2. LISINOPRIL [Suspect]
     Indication: HEART RATE INCREASED
     Route: 048
     Dates: start: 2013
  3. CRESTOR [Suspect]
     Indication: BLOOD CHOLESTEROL INCREASED
     Route: 048
     Dates: start: 2013
  4. METOPROLOL SUCCINATE [Suspect]
     Indication: HYPERTENSION
     Route: 048
  5. HCTZ [Suspect]
     Route: 065
  6. LIPITOR [Suspect]
     Route: 065
     Dates: end: 201306
  7. COUMADIN [Concomitant]
     Indication: ATRIAL FIBRILLATION
  8. FLECAINIDE [Concomitant]
     Indication: ATRIAL FIBRILLATION
  9. POTASSIUM [Concomitant]
  10. PROTINIX [Concomitant]
     Indication: GASTROOESOPHAGEAL REFLUX DISEASE

REACTIONS (10)
  - Heart rate irregular [Unknown]
  - Gait disturbance [Recovered/Resolved]
  - Mobility decreased [Not Recovered/Not Resolved]
  - Activities of daily living impaired [Not Recovered/Not Resolved]
  - Myalgia [Recovered/Resolved]
  - Heart rate increased [Unknown]
  - Myalgia [Not Recovered/Not Resolved]
  - Myalgia [Not Recovered/Not Resolved]
  - Arthralgia [Not Recovered/Not Resolved]
  - Fatigue [Not Recovered/Not Resolved]
